FAERS Safety Report 7375869-1 (Version None)
Quarter: 2011Q1

REPORT INFORMATION
  Report Type: 
  Country: None (occurrence: None)
  Receive Date: 20110315
  Receipt Date: 20110310
  Transmission Date: 20110831
  Serious: Yes (Life-Threatening, Hospitalization)
  Sender: FDA-Public Use
  Company Number: 2010SP063438

PATIENT
  Age: 80 Year
  Sex: Female

DRUGS (12)
  1. MALTODEXTRIN [Concomitant]
  2. PRAMIPEXOLE DIHYDROCHLORIDE [Concomitant]
  3. CALCIUM CARBONATE [Concomitant]
  4. FLECAINIDE ACETATE [Concomitant]
  5. DOCUSATE SODIUM [Concomitant]
  6. MULTI-VITAMIN [Concomitant]
  7. ONDANSETRON [Concomitant]
  8. ACETYLSALICYLIC ACID SRT [Concomitant]
  9. FAMOTIDINE [Concomitant]
  10. HYDROCODONE BITARTRATE AND ACETAMINOPHEN [Concomitant]
  11. TEMOZOLOMIDE [Suspect]
     Indication: GLIOBLASTOMA MULTIFORME
     Dosage: 250 MG; QD; IV
     Route: 042
     Dates: start: 20100928, end: 20101002
  12. METOCLOPRAMIDE HYDROCHLODIE [Concomitant]

REACTIONS (15)
  - INTRA-ABDOMINAL HAEMORRHAGE [None]
  - UNRESPONSIVE TO STIMULI [None]
  - CONVULSION [None]
  - THROMBOCYTOPENIA [None]
  - ATRIAL FIBRILLATION [None]
  - CONSTIPATION [None]
  - INCONTINENCE [None]
  - MENTAL STATUS CHANGES [None]
  - BRAIN MIDLINE SHIFT [None]
  - MYOPATHY [None]
  - INTRAVENTRICULAR HAEMORRHAGE [None]
  - DISEASE PROGRESSION [None]
  - HALLUCINATION [None]
  - DYSPHAGIA [None]
  - PULMONARY EMBOLISM [None]
